FAERS Safety Report 9758506 (Version 1)
Quarter: 2013Q4

REPORT INFORMATION
  Report Type: Spontaneous
  Country: US (occurrence: None)
  Receive Date: 20131216
  Receipt Date: 20131216
  Transmission Date: 20140711
  Serious: No
  Sender: FDA-Public Use
  Company Number: CABO-13002716

PATIENT
  Age: 70 Year
  Sex: Male
  Weight: 59 kg

DRUGS (3)
  1. COMETRIQ (CABOZANTINIB) CAPSULE [Suspect]
     Indication: PROSTATE CANCER
     Dosage: 60 MG, QD, ORAL
     Dates: start: 20130909
  2. ENZALUTAMIDE [Concomitant]
  3. PREDNISONE [Concomitant]

REACTIONS (2)
  - Dizziness [None]
  - Fatigue [None]
